FAERS Safety Report 8473047-6 (Version None)
Quarter: 2012Q2

REPORT INFORMATION
  Report Type: 
  Country: None (occurrence: None)
  Receive Date: 20120627
  Receipt Date: 20120618
  Transmission Date: 20120825
  Serious: Yes (Hospitalization)
  Sender: FDA-Public Use
  Company Number: PH-BAXTER-2012BAX009127

PATIENT
  Sex: Female

DRUGS (7)
  1. CALCIUM CARBONATE [Concomitant]
  2. DIANEAL PD-2 W/ DEXTROSE 1.5% [Suspect]
     Route: 033
     Dates: start: 20120222
  3. EPO [Concomitant]
  4. DIANEAL PD-2 W/ DEXTROSE 4.25% [Suspect]
     Route: 033
     Dates: start: 20120222
  5. FERROUS SULFATE TAB [Concomitant]
  6. SODIUM BICARBONATE [Concomitant]
  7. FA [Concomitant]

REACTIONS (3)
  - PERITONITIS [None]
  - CHEST PAIN [None]
  - PERITONEAL DIALYSIS COMPLICATION [None]
